FAERS Safety Report 7753216-0 (Version None)
Quarter: 2011Q3

REPORT INFORMATION
  Report Type: 
  Country: None (occurrence: None)
  Receive Date: 20110915
  Receipt Date: 20110905
  Transmission Date: 20111222
  Serious: Yes (Hospitalization, Other)
  Sender: FDA-Public Use
  Company Number: PHHY2011US70589

PATIENT
  Age: 45 Year
  Sex: Male

DRUGS (3)
  1. CEFTRIAXONE [Suspect]
     Indication: PYREXIA
  2. LOXOPROFEN [Suspect]
     Indication: PYREXIA
  3. DICLOFENAC SODIUM [Suspect]

REACTIONS (6)
  - PRURITUS [None]
  - ACTIVATED PARTIAL THROMBOPLASTIN TIME PROLONGED [None]
  - RASH [None]
  - EPISTAXIS [None]
  - BLISTER [None]
  - ACQUIRED HAEMOPHILIA [None]
